FAERS Safety Report 5924689-0 (Version None)
Quarter: 2008Q4

REPORT INFORMATION
  Report Type: 
  Country: None (occurrence: None)
  Receive Date: 20081015
  Receipt Date: 20080930
  Transmission Date: 20090506
  Serious: Yes (Other)
  Sender: FDA-Public Use
  Company Number: 2008SP002452

PATIENT
  Age: 38 Year
  Sex: Female

DRUGS (3)
  1. ALVESCO [Suspect]
     Indication: ASTHMA
     Dosage: 160 UG; 1X; INHALATION
     Route: 055
     Dates: start: 20080609, end: 20080609
  2. CON MEDS [Concomitant]
  3. PREV MEDS [Concomitant]

REACTIONS (2)
  - PRURITUS [None]
  - RASH GENERALISED [None]
